FAERS Safety Report 8756058 (Version 2)
Quarter: 2012Q4

REPORT INFORMATION
  Report Type: 
  Country: FR (occurrence: FR)
  Receive Date: 20120828
  Receipt Date: 20121001
  Transmission Date: 20130627
  Serious: Yes (Other)
  Sender: FDA-Public Use
  Company Number: FR-JNJFOC-20120812146

PATIENT
  Age: 58 Year
  Sex: Female
  Weight: 50 kg

DRUGS (9)
  1. REMICADE [Suspect]
     Indication: COLITIS ULCERATIVE
     Dosage: third infusion
     Route: 042
     Dates: start: 20120822
  2. REMICADE [Suspect]
     Indication: COLITIS ULCERATIVE
     Route: 042
     Dates: start: 20120725
  3. REMICADE [Suspect]
     Indication: COLITIS ULCERATIVE
     Route: 042
     Dates: start: 20120712
  4. TEMERIT [Concomitant]
     Indication: PRODUCT USED FOR UNKNOWN INDICATION
     Route: 048
     Dates: start: 20120619
  5. SOLU MEDROL [Concomitant]
     Indication: PREMEDICATION
     Route: 065
     Dates: start: 20120822
  6. IMUREL [Concomitant]
     Indication: COLITIS ULCERATIVE
     Route: 048
     Dates: start: 20120725
  7. SINTROM [Concomitant]
     Indication: PULMONARY EMBOLISM
     Route: 048
     Dates: start: 20120619
  8. CARDENSIEL [Concomitant]
     Indication: ATRIAL FIBRILLATION
     Dosage: dosage: 1 tablet (frequency unspecified)
     Route: 048
     Dates: start: 20120619
  9. SONDALIS HP [Concomitant]
     Route: 050

REACTIONS (9)
  - Chest discomfort [Unknown]
  - Rash [Unknown]
  - Blood pressure increased [Unknown]
  - Dyspnoea [Unknown]
  - Hot flush [Unknown]
  - Nausea [Unknown]
  - Vomiting [Unknown]
  - Back pain [Unknown]
  - Infusion related reaction [Unknown]
